FAERS Safety Report 21138209 (Version 2)
Quarter: 2022Q3

REPORT INFORMATION
  Report Type: Spontaneous
  Country: NL (occurrence: US)
  Receive Date: 20220727
  Receipt Date: 20220801
  Transmission Date: 20221027
  Serious: No
  Sender: FDA-Public Use
  Company Number: US-TAKEDA-2022TUS050374

PATIENT

DRUGS (1)
  1. CUVITRU [Suspect]
     Active Substance: HUMAN IMMUNOGLOBULIN G
     Indication: Small fibre neuropathy
     Dosage: 12 GRAM, 1/WEEK
     Route: 065

REACTIONS (4)
  - Anion gap decreased [Unknown]
  - Blood immunoglobulin G decreased [Unknown]
  - Mean cell volume increased [Unknown]
  - Mean cell haemoglobin concentration decreased [Unknown]
